FAERS Safety Report 8318575-9 (Version None)
Quarter: 2012Q2

REPORT INFORMATION
  Report Type: 
  Country: None (occurrence: None)
  Receive Date: 20120427
  Receipt Date: 20120418
  Transmission Date: 20120825
  Serious: Yes (Other)
  Sender: FDA-Public Use
  Company Number: US-ELI_LILLY_AND_COMPANY-US201204006701

PATIENT
  Sex: Male

DRUGS (4)
  1. CYMBALTA [Suspect]
     Dosage: 60 MG, QD
  2. CYMBALTA [Suspect]
     Dosage: 90 MG, QD
  3. CYMBALTA [Suspect]
     Dosage: 120 MG, QD
  4. CYMBALTA [Suspect]
     Indication: DEPRESSION
     Dosage: 30 MG, QD

REACTIONS (21)
  - WEIGHT DECREASED [None]
  - NERVOUSNESS [None]
  - MIGRAINE [None]
  - DIZZINESS [None]
  - MUSCULOSKELETAL STIFFNESS [None]
  - HYPERPARATHYROIDISM [None]
  - DISTURBANCE IN ATTENTION [None]
  - CATECHOLAMINES URINE INCREASED [None]
  - FLANK PAIN [None]
  - ANXIETY [None]
  - INSOMNIA [None]
  - SALIVARY DUCT OBSTRUCTION [None]
  - NOREPINEPHRINE INCREASED [None]
  - NEPHROLITHIASIS [None]
  - TREMOR [None]
  - TENSION HEADACHE [None]
  - LOSS OF CONSCIOUSNESS [None]
  - MEMORY IMPAIRMENT [None]
  - ASTHENIA [None]
  - BLOOD PRESSURE INCREASED [None]
  - GAIT DISTURBANCE [None]
